FAERS Safety Report 16831889 (Version 1)
Quarter: 2019Q4

REPORT INFORMATION
  Report Type: Spontaneous
  Country: US (occurrence: US)
  Receive Date: 20190919
  Receipt Date: 20190919
  Transmission Date: 20200122
  Serious: No
  Sender: FDA-Public Use
  Company Number: None

PATIENT
  Age: 58 Year
  Sex: Male
  Weight: 104.8 kg

DRUGS (4)
  1. EPIRUBICIN [Concomitant]
     Active Substance: EPIRUBICIN
  2. IFOSFAMIDE. [Suspect]
     Active Substance: IFOSFAMIDE
  3. EPIRUBICIN [Suspect]
     Active Substance: EPIRUBICIN
  4. IFSOFAMIDE EG [Concomitant]
     Active Substance: IFOSFAMIDE

REACTIONS (2)
  - Gastrointestinal necrosis [None]
  - Colitis [None]

NARRATIVE: CASE EVENT DATE: 20190316
